FAERS Safety Report 25014628 (Version 1)
Quarter: 2025Q1

REPORT INFORMATION
  Report Type: Spontaneous
  Country: US (occurrence: US)
  Receive Date: 20250226
  Receipt Date: 20250226
  Transmission Date: 20250409
  Serious: Yes (Hospitalization, Other)
  Sender: SANOFI AVENTIS
  Company Number: US-SA-2025SA058651

PATIENT
  Sex: Female

DRUGS (3)
  1. DUPIXENT [Suspect]
     Active Substance: DUPILUMAB
     Indication: Asthma
     Dosage: 300 MG, QOW
     Route: 058
     Dates: start: 202404
  2. EPINEPHRINE [Concomitant]
     Active Substance: EPINEPHRINE
  3. HIZENTRA [Concomitant]
     Active Substance: HUMAN IMMUNOGLOBULIN G

REACTIONS (6)
  - Pneumonia [Unknown]
  - Influenza [Unknown]
  - Pyrexia [Unknown]
  - Hypoxia [Unknown]
  - Hypersensitivity [Unknown]
  - Serum sickness-like reaction [Unknown]
